FAERS Safety Report 4350438-6 (Version None)
Quarter: 2004Q2

REPORT INFORMATION
  Report Type: 
  Country: None (occurrence: None)
  Receive Date: 20040427
  Receipt Date: 20040415
  Transmission Date: 20050107
  Serious: Yes (Other)
  Sender: FDA-Public Use
  Company Number: 2004025713

PATIENT
  Age: 26 Year
  Sex: Female

DRUGS (3)
  1. DILANTIN [Suspect]
     Indication: ILL-DEFINED DISORDER
  2. TOPIRAMATE [Suspect]
     Indication: ILL-DEFINED DISORDER
  3. ACETAMINOPHEN [Suspect]
     Indication: ILL-DEFINED DISORDER

REACTIONS (5)
  - DRUG EFFECT DECREASED [None]
  - GRAND MAL CONVULSION [None]
  - MIGRAINE [None]
  - MYALGIA [None]
  - PARTIAL SEIZURES [None]
